FAERS Safety Report 11335639 (Version 2)
Quarter: 2015Q3

REPORT INFORMATION
  Report Type: Spontaneous
  Country: US (occurrence: US)
  Receive Date: 20150804
  Receipt Date: 20150826
  Transmission Date: 20151125
  Serious: No
  Sender: FDA-Public Use
  Company Number: US-GLAXOSMITHKLINE-US2015110292

PATIENT
  Age: 46 Year
  Sex: Female

DRUGS (1)
  1. NICORETTE MINT [Suspect]
     Active Substance: NICOTINE
     Indication: SMOKING CESSATION THERAPY
     Dosage: 4 MG, UNK
     Route: 002
     Dates: end: 20150731

REACTIONS (3)
  - Gingival bleeding [Recovered/Resolved]
  - Productive cough [Recovered/Resolved]
  - Saliva discolouration [Recovered/Resolved]

NARRATIVE: CASE EVENT DATE: 20150731
